FAERS Safety Report 6749404-2 (Version None)
Quarter: 2010Q2

REPORT INFORMATION
  Report Type: 
  Country: None (occurrence: None)
  Receive Date: 20100601
  Receipt Date: 20100517
  Transmission Date: 20101027
  Serious: Yes (Hospitalization, Other)
  Sender: FDA-Public Use
  Company Number: US-ASTRAZENECA-2009SE15955

PATIENT
  Age: 19814 Day
  Sex: Male

DRUGS (3)
  1. SEROQUEL [Suspect]
     Route: 048
     Dates: end: 20070429
  2. NEURONTIN [Concomitant]
     Dosage: 300 MG TID
  3. LEXAPRO [Concomitant]
     Dosage: 10 MG
     Dates: start: 20070101

REACTIONS (3)
  - DIABETES MELLITUS [None]
  - DIABETIC COMA [None]
  - DIABETIC NEUROPATHY [None]
